FAERS Safety Report 7244029-7 (Version None)
Quarter: 2011Q1

REPORT INFORMATION
  Report Type: 
  Country: None (occurrence: None)
  Receive Date: 20110125
  Receipt Date: 20110114
  Transmission Date: 20110831
  Serious: Yes (Hospitalization)
  Sender: FDA-Public Use
  Company Number: JP-MERCK-1101USA01664

PATIENT
  Age: 24 Month
  Weight: 11 kg

DRUGS (1)
  1. HYZAAR [Suspect]
     Dosage: AROUND 2-4 TABLETS
     Route: 048

REACTIONS (2)
  - ACCIDENTAL OVERDOSE [None]
  - ACCIDENTAL EXPOSURE [None]
